FAERS Safety Report 13358500 (Version 1)
Quarter: 2017Q1

REPORT INFORMATION
  Report Type: Spontaneous
  Country: US (occurrence: US)
  Receive Date: 20170322
  Receipt Date: 20170322
  Transmission Date: 20170429
  Serious: No
  Sender: FDA-Public Use
  Company Number: US-BIOGEN-2017BI00374338

PATIENT
  Sex: Female

DRUGS (1)
  1. TECFIDERA [Suspect]
     Active Substance: DIMETHYL FUMARATE
     Indication: MULTIPLE SCLEROSIS
     Route: 065
     Dates: start: 20160727

REACTIONS (4)
  - Muscle spasticity [Not Recovered/Not Resolved]
  - Fall [Not Recovered/Not Resolved]
  - Drug dose omission [Not Recovered/Not Resolved]
  - Memory impairment [Not Recovered/Not Resolved]
